FAERS Safety Report 4856520-9 (Version None)
Quarter: 2005Q4

REPORT INFORMATION
  Report Type: 
  Country: None (occurrence: None)
  Receive Date: 20051215
  Receipt Date: 20051215
  Transmission Date: 20060501
  Serious: Yes (Other)
  Sender: FDA-Public Use
  Company Number: None

PATIENT
  Age: 57 Year
  Sex: Female
  Weight: 54.4316 kg

DRUGS (5)
  1. ACTONEL [Suspect]
     Indication: OSTEOPOROSIS
     Dosage: AS ABOVE
  2. BONIVA [Suspect]
     Indication: OSTEOPOROSIS
  3. SYNTHROID [Concomitant]
  4. WELLBUTRIN [Concomitant]
  5. RESTORIL [Concomitant]

REACTIONS (3)
  - OSTEONECROSIS [None]
  - PAIN IN JAW [None]
  - POSTOPERATIVE WOUND COMPLICATION [None]
